FAERS Safety Report 17346151 (Version 1)
Quarter: 2020Q1

REPORT INFORMATION
  Report Type: Report from Study
  Country: US (occurrence: US)
  Receive Date: 20200129
  Receipt Date: 20200129
  Transmission Date: 20200409
  Serious: Yes (Hospitalization)
  Sender: FDA-Public Use
  Company Number: US-EXELIXIS-CABO-19020818

PATIENT
  Age: 62 Year
  Sex: Male

DRUGS (2)
  1. CABOMETYX [Suspect]
     Active Substance: CABOZANTINIB S-MALATE
     Indication: IRON DEFICIENCY ANAEMIA
     Dosage: 60 MG, QD
     Route: 048
     Dates: start: 20190319, end: 201903
  2. CABOMETYX [Suspect]
     Active Substance: CABOZANTINIB S-MALATE
     Dosage: 60 MG, QD
     Route: 048

REACTIONS (3)
  - Constipation [Unknown]
  - Blood pressure inadequately controlled [Unknown]
  - Off label use [Unknown]

NARRATIVE: CASE EVENT DATE: 201903
